FAERS Safety Report 24760044 (Version 1)
Quarter: 2024Q4

REPORT INFORMATION
  Report Type: Spontaneous
  Country: FR (occurrence: FR)
  Receive Date: 20241220
  Receipt Date: 20241220
  Transmission Date: 20250114
  Serious: Yes (Death)
  Sender: B BRAUN
  Company Number: FR-B.Braun Medical Inc.-2167511

PATIENT
  Age: 40 Year
  Sex: Female

DRUGS (9)
  1. ACETAMINOPHEN [Suspect]
     Active Substance: ACETAMINOPHEN
  2. TRAMADOL HYDROCHLORIDE [Suspect]
     Active Substance: TRAMADOL HYDROCHLORIDE
  3. TRIMEPRAZINE [Suspect]
     Active Substance: TRIMEPRAZINE
  4. LORMETAZEPAM [Suspect]
     Active Substance: LORMETAZEPAM
  5. DIAZEPAM [Suspect]
     Active Substance: DIAZEPAM
  6. METFORMIN HYDROCHLORIDE [Suspect]
     Active Substance: METFORMIN HYDROCHLORIDE
  7. CYAMEMAZINE [Suspect]
     Active Substance: CYAMEMAZINE
  8. FLUOXETINE HYDROCHLORIDE [Suspect]
     Active Substance: FLUOXETINE HYDROCHLORIDE
  9. CODEINE [Suspect]
     Active Substance: CODEINE

REACTIONS (2)
  - Poisoning [Fatal]
  - Cardio-respiratory arrest [Fatal]
